FAERS Safety Report 19115431 (Version 1)
Quarter: 2021Q2

REPORT INFORMATION
  Report Type: Spontaneous
  Country: DE (occurrence: DE)
  Receive Date: 20210409
  Receipt Date: 20210409
  Transmission Date: 20210717
  Serious: Yes (Other)
  Sender: FDA-Public Use
  Company Number: DE-PFIZER INC-2021358643

PATIENT
  Age: 61 Year
  Sex: Female

DRUGS (1)
  1. VENLAFAXINE HCL [Suspect]
     Active Substance: VENLAFAXINE HYDROCHLORIDE
     Indication: BURNOUT SYNDROME
     Dosage: UNK
     Dates: start: 2008

REACTIONS (10)
  - Dry mouth [Unknown]
  - Fatigue [Unknown]
  - Off label use [Unknown]
  - Hyperhidrosis [Unknown]
  - Nausea [Unknown]
  - Palpitations [Unknown]
  - Osteoarthritis [Unknown]
  - Dependence [Unknown]
  - Aggression [Unknown]
  - Spondylitis [Unknown]
